FAERS Safety Report 5363270-1 (Version None)
Quarter: 2007Q2

REPORT INFORMATION
  Report Type: 
  Country: None (occurrence: None)
  Receive Date: 20070530
  Receipt Date: 20070104
  Transmission Date: 20071010
  Serious: No
  Sender: FDA-Public Use
  Company Number: 2007PV027849

PATIENT
  Age: 61 Year
  Sex: Female
  Weight: 94.8018 kg

DRUGS (9)
  1. BYETTA [Suspect]
     Indication: DIABETES MELLITUS NON-INSULIN-DEPENDENT
     Dosage: 5 MCG;BID;SC ; 5 MCG;QAM;SC
     Route: 058
     Dates: start: 20061220, end: 20061222
  2. BYETTA [Suspect]
     Indication: WEIGHT DECREASED
     Dosage: 5 MCG;BID;SC ; 5 MCG;QAM;SC
     Route: 058
     Dates: start: 20061220, end: 20061222
  3. BYETTA [Suspect]
     Indication: DIABETES MELLITUS NON-INSULIN-DEPENDENT
     Dosage: 5 MCG;BID;SC ; 5 MCG;QAM;SC
     Route: 058
     Dates: start: 20061223
  4. BYETTA [Suspect]
     Indication: WEIGHT DECREASED
     Dosage: 5 MCG;BID;SC ; 5 MCG;QAM;SC
     Route: 058
     Dates: start: 20061223
  5. LISINOPRIL [Suspect]
     Indication: HYPERTENSION
     Dosage: 10 MG;QD;PO
     Route: 048
     Dates: start: 20040101
  6. GLUCOTROL [Concomitant]
  7. METFORMIN HCL [Concomitant]
  8. LANTUS [Concomitant]
  9. ASPIRIN [Concomitant]

REACTIONS (3)
  - FEELING JITTERY [None]
  - NAUSEA [None]
  - NERVOUSNESS [None]
